FAERS Safety Report 23952851 (Version 1)
Quarter: 2024Q2

REPORT INFORMATION
  Report Type: Spontaneous
  Country: US (occurrence: US)
  Receive Date: 20240607
  Receipt Date: 20240607
  Transmission Date: 20240716
  Serious: Yes (Hospitalization)
  Sender: FDA-Public Use
  Company Number: US-AMGEN-USASP2024107515

PATIENT
  Age: 23 Year
  Sex: Female

DRUGS (5)
  1. BEVACIZUMAB [Suspect]
     Active Substance: BEVACIZUMAB
     Indication: Hepatocellular carcinoma
     Dosage: UNK
     Route: 065
     Dates: start: 202110
  2. ATEZOLIZUMAB [Concomitant]
     Active Substance: ATEZOLIZUMAB
     Indication: Hepatocellular carcinoma
     Dosage: UNK
     Route: 065
     Dates: start: 202110
  3. NIVOLUMAB [Concomitant]
     Active Substance: NIVOLUMAB
     Indication: Hepatocellular carcinoma
     Dosage: UNK
     Route: 065
     Dates: start: 2019
  4. LENVATINIB [Concomitant]
     Active Substance: LENVATINIB
     Indication: Hepatocellular carcinoma
     Dosage: UNK
     Route: 065
     Dates: start: 2020
  5. CABOZANTINIB [Concomitant]
     Active Substance: CABOZANTINIB
     Indication: Hepatocellular carcinoma
     Dosage: UNK
     Route: 065
     Dates: start: 2021

REACTIONS (7)
  - Acute kidney injury [Recovered/Resolved]
  - Tachycardia [Unknown]
  - Tachypnoea [Unknown]
  - Hepatocellular carcinoma [Unknown]
  - Hypertriglyceridaemia [Unknown]
  - Hyperglycaemia [Recovered/Resolved]
  - Off label use [Unknown]
